FAERS Safety Report 16705969 (Version 2)
Quarter: 2019Q3

REPORT INFORMATION
  Report Type: Spontaneous
  Country: ES (occurrence: ES)
  Receive Date: 20190815
  Receipt Date: 20190820
  Transmission Date: 20191004
  Serious: Yes (Other)
  Sender: FDA-Public Use
  Company Number: ES-CHIESI USA, INC.-ES-2019CHI000310

PATIENT

DRUGS (2)
  1. CLEVIDIPINE [Suspect]
     Active Substance: CLEVIDIPINE
     Indication: POSTOPERATIVE HYPERTENSION
     Dosage: 2 MG/H, UNK
     Route: 042
  2. CLEVIDIPINE [Suspect]
     Active Substance: CLEVIDIPINE
     Dosage: 6 MG/H, UNK
     Route: 042

REACTIONS (1)
  - Renal failure [Recovered/Resolved]
